FAERS Safety Report 22607048 (Version 3)
Quarter: 2024Q1

REPORT INFORMATION
  Report Type: Spontaneous
  Country: US (occurrence: US)
  Receive Date: 20230615
  Receipt Date: 20240104
  Transmission Date: 20240410
  Serious: Yes (Other)
  Sender: FDA-Public Use
  Company Number: US-INCYTE CORPORATION-2023IN002562

PATIENT

DRUGS (5)
  1. JAKAFI [Suspect]
     Active Substance: RUXOLITINIB
     Indication: Polycythaemia vera
     Dosage: 5 MILLIGRAM, BID (TAKE 1 TABLET IN AM AND 2 TABLETS IN PM)
     Route: 048
     Dates: start: 20211026
  2. JAKAFI [Suspect]
     Active Substance: RUXOLITINIB
     Dosage: 15 MILLIGRAM, QD (5MG IN THE MORNING, 10MG IN THE EVENING)
     Route: 048
     Dates: start: 20211026
  3. JAKAFI [Suspect]
     Active Substance: RUXOLITINIB
     Dosage: 15 MILLIGRAM, QD (5MG IN THE MORNING, 10MG IN THE EVENING)
     Route: 048
     Dates: start: 20211026
  4. JAKAFI [Suspect]
     Active Substance: RUXOLITINIB
     Dosage: 1X5MG IN THE MORNING, 2X5MG IN THE EVENING
     Route: 048
     Dates: start: 202206
  5. HYDROXYUREA [Suspect]
     Active Substance: HYDROXYUREA
     Indication: Product used for unknown indication
     Dosage: UNK
     Route: 065

REACTIONS (10)
  - Testis cancer [Unknown]
  - Basal cell carcinoma [Unknown]
  - Peripheral artery stenosis [Unknown]
  - Bone cancer [Unknown]
  - Hypersensitivity [Unknown]
  - Fatigue [Unknown]
  - Red blood cell count increased [Unknown]
  - Pruritus [Unknown]
  - Hepatic enzyme increased [Unknown]
  - Weight increased [Unknown]
